FAERS Safety Report 9643704 (Version 1)
Quarter: 2013Q4

REPORT INFORMATION
  Report Type: Spontaneous
  Country: BR (occurrence: BR)
  Receive Date: 20131024
  Receipt Date: 20131024
  Transmission Date: 20140711
  Serious: Yes (Other)
  Sender: FDA-Public Use
  Company Number: BR-009507513-1310BRA009158

PATIENT
  Sex: Male
  Weight: 90 kg

DRUGS (2)
  1. PRINZIDE [Suspect]
     Indication: HYPERTENSION
     Dosage: 1 DF, QD
     Route: 048
     Dates: start: 2003
  2. ATENOLOL [Concomitant]
     Indication: HYPERTENSION
     Dosage: 50 MG, QD
     Route: 048
     Dates: start: 1999

REACTIONS (6)
  - Skin cancer [Recovered/Resolved]
  - Skin neoplasm excision [Unknown]
  - Panic disorder [Not Recovered/Not Resolved]
  - Stress [Not Recovered/Not Resolved]
  - Drug administration error [Unknown]
  - Product quality issue [Unknown]
